FAERS Safety Report 9041132 (Version 1)
Quarter: 2013Q1

REPORT INFORMATION
  Report Type: Spontaneous
  Country: US (occurrence: None)
  Receive Date: 20130114
  Receipt Date: 20130114
  Transmission Date: 20140127
  Serious: Yes (Other)
  Sender: FDA-Public Use
  Company Number: DSU-2013-00091

PATIENT
  Age: 77 Year
  Sex: Female
  Weight: 77.11 kg

DRUGS (8)
  1. TRIBENZOR [Suspect]
     Indication: HYPERTENSION
     Route: 048
     Dates: start: 2012, end: 20121224
  2. METFORMIN (METFORMIN) (500 MILLIGRAM, TABLET) (METFORMIN) [Concomitant]
     Indication: TYPE 2 DIABETES MELLITUS
  3. LIPITOR (ATORVASTATNI CALCIUM) (10 MILLIGRAM) (ATORVASTATIN CALCIUM) [Concomitant]
     Indication: HYPERCHOLESTEROLAEMIA
  4. LEVOTHYROXINE (LEVOTHYROXINE) (50 MILLIGRAM) (LEVOTHYROXINE) [Concomitant]
     Indication: HYPERTHYROIDISM
  5. ISOSORBIDE (ISOSORBIDE) (60 MILLIGRAM, TABLET) (ISOSORBIDE) [Concomitant]
  6. TEMAZEPAM (TEMAZEPAM) (30 MILLIGRAM) (TEMAZEPAM) [Concomitant]
     Indication: SLEEP DISORDER
  7. VICODIN (PARACETAMOL, HYDROCODONE BITARTRATE) (PARACETAMOL, HYDROCDONE BITARTRATE) [Concomitant]
     Indication: PAIN
  8. PRILOSEC (OMEPRAZOLE) (OMEPRAZOLE) [Concomitant]
     Indication: GASTROOESOPHAGEAL REFLUX DISEASE

REACTIONS (8)
  - Cataract [None]
  - Eye pain [None]
  - Dry mouth [None]
  - Restlessness [None]
  - Muscle spasms [None]
  - Dizziness [None]
  - Headache [None]
  - Dizziness postural [None]
